FAERS Safety Report 5837797-X (Version None)
Quarter: 2008Q3

REPORT INFORMATION
  Report Type: 
  Country: None (occurrence: None)
  Receive Date: 20080806
  Receipt Date: 20080801
  Transmission Date: 20090109
  Serious: No
  Sender: FDA-Public Use
  Company Number: 2008SP014230

PATIENT
  Age: 60 Year
  Sex: Female

DRUGS (2)
  1. PEG-INTRON (PEGINTERFERON ALFA-2B) [Suspect]
     Indication: HEPATITIS C
     Dosage: SC
     Route: 058
     Dates: start: 20080509
  2. RIBAVIRIN [Suspect]
     Indication: HEPATITIS C
     Dosage: PO
     Route: 048
     Dates: start: 20080509

REACTIONS (4)
  - BLOOD AMYLASE INCREASED [None]
  - GASTRITIS [None]
  - STOMACH DISCOMFORT [None]
  - VOMITING [None]
